FAERS Safety Report 23999188 (Version 1)
Quarter: 2024Q2

REPORT INFORMATION
  Report Type: Spontaneous
  Country: CN (occurrence: CN)
  Receive Date: 20240621
  Receipt Date: 20240621
  Transmission Date: 20240716
  Serious: Yes (Hospitalization, Other)
  Sender: FDA-Public Use
  Company Number: CN-STERISCIENCE B.V.-2024-ST-000837

PATIENT
  Age: 68 Year
  Sex: Male

DRUGS (11)
  1. PIPERACILLIN SODIUM\TAZOBACTAM SODIUM [Suspect]
     Active Substance: PIPERACILLIN SODIUM\TAZOBACTAM SODIUM
     Indication: Klebsiella infection
     Dosage: 4.5 GRAM, Q8H
     Route: 065
     Dates: end: 2023
  2. PIPERACILLIN SODIUM\TAZOBACTAM SODIUM [Suspect]
     Active Substance: PIPERACILLIN SODIUM\TAZOBACTAM SODIUM
     Indication: Serratia infection
     Dosage: 4.5 GRAM, Q8H
     Route: 065
  3. PIPERACILLIN SODIUM\TAZOBACTAM SODIUM [Suspect]
     Active Substance: PIPERACILLIN SODIUM\TAZOBACTAM SODIUM
     Dosage: UNK
     Route: 065
  4. VANCOMYCIN [Suspect]
     Active Substance: VANCOMYCIN
     Indication: Klebsiella infection
     Dosage: 1 GRAM, BID
     Route: 065
     Dates: start: 2023
  5. MEROPENEM [Suspect]
     Active Substance: MEROPENEM
     Indication: Klebsiella infection
     Dosage: 1 GRAM, Q8H
     Route: 065
     Dates: end: 2023
  6. IMIPENEM [Suspect]
     Active Substance: IMIPENEM
     Indication: Klebsiella infection
     Dosage: 0.5 GRAM, Q8H
     Route: 065
     Dates: start: 2023
  7. CEFUROXIME [Suspect]
     Active Substance: CEFUROXIME
     Indication: Klebsiella infection
     Dosage: 1.5 GRAM, BID
     Route: 065
     Dates: end: 2023
  8. LEVOFLOXACIN [Suspect]
     Active Substance: LEVOFLOXACIN
     Indication: Klebsiella infection
     Dosage: 0.5 GRAM, QD
     Route: 065
     Dates: end: 2023
  9. TIGECYCLINE [Suspect]
     Active Substance: TIGECYCLINE
     Indication: Klebsiella infection
     Dosage: 100 MILLIGRAM, BID
     Route: 065
     Dates: start: 2023
  10. CASPOFUNGIN [Suspect]
     Active Substance: CASPOFUNGIN
     Indication: Klebsiella infection
     Dosage: 50 MILLIGRAM, QD
     Route: 065
     Dates: start: 2023
  11. AVIBACTAM SODIUM\CEFTAZIDIME [Suspect]
     Active Substance: AVIBACTAM SODIUM\CEFTAZIDIME
     Indication: Serratia infection
     Dosage: UNK
     Route: 065

REACTIONS (2)
  - Drug ineffective for unapproved indication [Unknown]
  - Drug ineffective [Unknown]

NARRATIVE: CASE EVENT DATE: 20230131
